FAERS Safety Report 6864572-X (Version None)
Quarter: 2010Q3

REPORT INFORMATION
  Report Type: 
  Country: None (occurrence: None)
  Receive Date: 20100721
  Receipt Date: 20080327
  Transmission Date: 20110219
  Serious: No
  Sender: FDA-Public Use
  Company Number: US-PFIZER INC-2008028004

PATIENT
  Sex: Male
  Weight: 111.36 kg

DRUGS (4)
  1. CHANTIX [Suspect]
     Indication: SMOKING CESSATION THERAPY
     Route: 048
     Dates: start: 20080303
  2. LOVASTATIN [Concomitant]
  3. METOPROLOL [Concomitant]
  4. ACETYLSALICYLIC ACID [Concomitant]

REACTIONS (3)
  - ABDOMINAL PAIN [None]
  - NAUSEA [None]
  - VOMITING [None]
